FAERS Safety Report 8571777-9 (Version None)
Quarter: 2012Q3

REPORT INFORMATION
  Report Type: 
  Country: None (occurrence: None)
  Receive Date: 20120806
  Receipt Date: 20120730
  Transmission Date: 20120928
  Serious: Yes (Other)
  Sender: FDA-Public Use
  Company Number: DE-JNJFOC-20120801217

PATIENT
  Sex: Female

DRUGS (2)
  1. LISTERINE ADVANCED TARTAR CONTROL [Suspect]
     Indication: PRODUCT USED FOR UNKNOWN INDICATION
     Route: 048
  2. METOPROLOL TARTRATE [Concomitant]
     Indication: PRODUCT USED FOR UNKNOWN INDICATION
     Route: 048

REACTIONS (4)
  - CARDIOVASCULAR DISORDER [None]
  - PHARYNGEAL OEDEMA [None]
  - HEART RATE INCREASED [None]
  - SYNCOPE [None]
